FAERS Safety Report 14243551 (Version 1)
Quarter: 2017Q4

REPORT INFORMATION
  Report Type: Spontaneous
  Country: CH (occurrence: CH)
  Receive Date: 20171201
  Receipt Date: 20171201
  Transmission Date: 20180321
  Serious: Yes (Hospitalization)
  Sender: FDA-Public Use
  Company Number: CH-ASTRAZENECA-2017SF19625

PATIENT
  Age: 28215 Day
  Sex: Male

DRUGS (21)
  1. NEXIUM [Suspect]
     Active Substance: ESOMEPRAZOLE MAGNESIUM
     Indication: MELAENA
     Route: 048
  2. ALDACTONE [Suspect]
     Active Substance: SPIRONOLACTONE
     Indication: HYPERTENSION
     Route: 048
     Dates: start: 2012
  3. TOREM [Suspect]
     Active Substance: TORSEMIDE
     Indication: HYPERTENSION
     Route: 048
     Dates: start: 20150601, end: 201710
  4. CETIRIZINE [Concomitant]
     Active Substance: CETIRIZINE HYDROCHLORIDE
     Dates: start: 20171027
  5. SYMFONA [Suspect]
     Active Substance: GINKGO
     Indication: COGNITIVE DISORDER
     Route: 048
     Dates: start: 201705, end: 201710
  6. EUTHYROX [Concomitant]
     Active Substance: LEVOTHYROXINE SODIUM
     Dates: start: 1988
  7. TAZOBAC [Suspect]
     Active Substance: PIPERACILLIN SODIUM\TAZOBACTAM SODIUM
     Route: 041
     Dates: start: 20160128
  8. PREDNISONE. [Suspect]
     Active Substance: PREDNISONE
     Route: 048
     Dates: start: 20170102, end: 20170107
  9. IPRAMOL [Concomitant]
     Active Substance: ALBUTEROL SULFATE\IPRATROPIUM BROMIDE
     Dates: start: 20171031
  10. XARELTO [Suspect]
     Active Substance: RIVAROXABAN
     Indication: ATRIAL FIBRILLATION
     Route: 048
     Dates: start: 201601
  11. GLYCEROL\PARAFFIN [Concomitant]
     Active Substance: GLYCERIN\PARAFFIN
     Dates: start: 20171004, end: 20171027
  12. SERETIDE [Concomitant]
     Active Substance: FLUTICASONE PROPIONATE\SALMETEROL XINAFOATE
     Dates: start: 2016, end: 2016
  13. VESICARE [Concomitant]
     Active Substance: SOLIFENACIN SUCCINATE
     Dates: end: 201602
  14. CORDARONE [Suspect]
     Active Substance: AMIODARONE HYDROCHLORIDE
     Indication: ATRIAL FIBRILLATION
     Route: 048
     Dates: start: 201202, end: 201602
  15. DERMOVATE CREME [Concomitant]
     Dates: start: 20171004, end: 20171027
  16. AUGMENTIN [Concomitant]
     Active Substance: AMOXICILLIN\CLAVULANATE POTASSIUM
     Dates: start: 20171026, end: 20171027
  17. LASIX [Concomitant]
     Active Substance: FUROSEMIDE
     Dates: start: 20171101
  18. ACIDUM FOLICUM [Concomitant]
     Active Substance: FOLIC ACID
     Dates: start: 20171027
  19. ASPIRIN CARDIO [Suspect]
     Active Substance: ASPIRIN
     Route: 048
  20. PIPERACILLIN AND TAZOBACTAM [Concomitant]
     Active Substance: PIPERACILLIN SODIUM\TAZOBACTAM SODIUM
     Indication: PYREXIA
     Route: 041
     Dates: start: 20171027
  21. VI-DE 3 [Concomitant]
     Active Substance: CHOLECALCIFEROL
     Dates: start: 20170824

REACTIONS (5)
  - Upper gastrointestinal haemorrhage [Recovered/Resolved]
  - Clostridium difficile colitis [Recovered/Resolved]
  - Rash maculo-papular [Recovering/Resolving]
  - Haematuria [Unknown]
  - Bradycardia [Recovered/Resolved]

NARRATIVE: CASE EVENT DATE: 20120128
